FAERS Safety Report 5093650-3 (Version None)
Quarter: 2006Q3

REPORT INFORMATION
  Report Type: 
  Country: None (occurrence: None)
  Receive Date: 20060829
  Receipt Date: 20060814
  Transmission Date: 20061208
  Serious: Yes (Other)
  Sender: FDA-Public Use
  Company Number: US018010

PATIENT
  Age: 43 Year
  Sex: Female
  Weight: 66.6788 kg

DRUGS (7)
  1. ACTIQ [Suspect]
     Indication: CANCER PAIN
     Dosage: 400 UG Q2HR BUCCAL
     Route: 002
     Dates: start: 20040801
  2. AREDIA [Suspect]
  3. OXYCONTIN [Concomitant]
  4. ARIMIDEX [Concomitant]
  5. XELODA [Concomitant]
  6. OMEPRAZOLE [Concomitant]
  7. EFFEXPR-XR [Concomitant]

REACTIONS (6)
  - DENTAL CARIES [None]
  - IMPAIRED HEALING [None]
  - OSTEONECROSIS [None]
  - PAIN IN JAW [None]
  - TOOTH DISCOLOURATION [None]
  - TOOTH LOSS [None]
